FAERS Safety Report 11786229 (Version 2)
Quarter: 2015Q4

REPORT INFORMATION
  Report Type: Spontaneous
  Country: IT (occurrence: IT)
  Receive Date: 20151130
  Receipt Date: 20151227
  Transmission Date: 20160305
  Serious: Yes (Life-Threatening)
  Sender: FDA-Public Use
  Company Number: IT-TEVA-611200ACC

PATIENT
  Age: 70 Year
  Sex: Female

DRUGS (12)
  1. TRITTICO - AZIENDE CHIMICHE RIUNITE ANGELINI FRANCESCO ACRAF SPA [Suspect]
     Active Substance: TRAZODONE HYDROCHLORIDE
     Indication: PRODUCT USED FOR UNKNOWN INDICATION
     Dosage: 15 GTT DAILY; 60 MG/ML, 15 GTT, AT NIGHT
  2. QUETIAPINE [Suspect]
     Active Substance: QUETIAPINE
     Indication: PRODUCT USED FOR UNKNOWN INDICATION
     Dosage: 25 MILLIGRAM DAILY;
  3. PANTOPRAZOLE [Suspect]
     Active Substance: PANTOPRAZOLE SODIUM
     Indication: PRODUCT USED FOR UNKNOWN INDICATION
     Dosage: 20 MILLIGRAM DAILY;
  4. LORAZEPAM. [Suspect]
     Active Substance: LORAZEPAM
     Indication: PRODUCT USED FOR UNKNOWN INDICATION
     Dosage: 68 GTT DAILY; 1 MG, 20 GTT, AT NIGHT
  5. CARDIOASPIRIN - BAYER S.P.A. [Suspect]
     Active Substance: ASPIRIN
     Indication: PRODUCT USED FOR UNKNOWN INDICATION
     Dosage: DAILY
  6. TRIAZOLAM. [Concomitant]
     Active Substance: TRIAZOLAM
     Indication: PRODUCT USED FOR UNKNOWN INDICATION
     Dosage: 0.25 MG, 20 GIT, AT NIGHT
  7. LOPRESOR - DAIICHI SANKYO ITALIA S.P.A. [Suspect]
     Active Substance: METOPROLOL TARTRATE
     Indication: PRODUCT USED FOR UNKNOWN INDICATION
     Dosage: 25 MILLIGRAM DAILY;
     Route: 048
  8. RIVOTRIL [Suspect]
     Active Substance: CLONAZEPAM
     Indication: PRODUCT USED FOR UNKNOWN INDICATION
     Dosage: 28 GTT DAILY; 1.8 MG, 28 GTT, AT NIGHT
  9. ATORVASTATIN [Suspect]
     Active Substance: ATORVASTATIN
     Indication: PRODUCT USED FOR UNKNOWN INDICATION
     Dosage: 40 MILLIGRAM DAILY;
  10. OLANZAPINE. [Suspect]
     Active Substance: OLANZAPINE
     Indication: PRODUCT USED FOR UNKNOWN INDICATION
     Dosage: 5.0 MILLIGRAMS, AT NIGHT
  11. BRILIQUE - ASTRAZENECA AB [Suspect]
     Active Substance: TICAGRELOR
     Indication: PRODUCT USED FOR UNKNOWN INDICATION
     Dosage: 180 MILLIGRAM DAILY;
     Route: 048
  12. TIROSINT [Concomitant]
     Active Substance: LEVOTHYROXINE SODIUM
     Indication: HYPOTHYROIDISM

REACTIONS (11)
  - Electrocardiogram QT prolonged [Unknown]
  - Feeling cold [Unknown]
  - Weight increased [Unknown]
  - Malaise [Unknown]
  - Fatigue [Unknown]
  - Electrocardiogram T wave inversion [Unknown]
  - Discomfort [Unknown]
  - Suicide attempt [Unknown]
  - Dyspnoea [Unknown]
  - Blood pressure decreased [Unknown]
  - Myocardial ischaemia [Unknown]
